FAERS Safety Report 7835098-1 (Version None)
Quarter: 2011Q4

REPORT INFORMATION
  Report Type: 
  Country: None (occurrence: None)
  Receive Date: 20111024
  Receipt Date: 20111011
  Transmission Date: 20120403
  Serious: Yes (Hospitalization)
  Sender: FDA-Public Use
  Company Number: US-ELI_LILLY_AND_COMPANY-US201108002814

PATIENT
  Sex: Male

DRUGS (4)
  1. ZYPREXA [Suspect]
     Dosage: 15 MG, QD
  2. SEROQUEL [Concomitant]
     Indication: SLEEP DISORDER
  3. ZYPREXA [Suspect]
     Dosage: 15 MG, QD
  4. ZYPREXA [Suspect]
     Dosage: 20 MG, QD

REACTIONS (4)
  - SCHIZOPHRENIA [None]
  - DEPRESSED MOOD [None]
  - DRUG INEFFECTIVE [None]
  - OVERDOSE [None]
